FAERS Safety Report 10904431 (Version 1)
Quarter: 2015Q1

REPORT INFORMATION
  Report Type: Spontaneous
  Country: RU (occurrence: RU)
  Receive Date: 20150311
  Receipt Date: 20150311
  Transmission Date: 20150721
  Serious: Yes (Other)
  Sender: FDA-Public Use
  Company Number: RU-BAYER-2015-035295

PATIENT
  Age: 28 Year
  Sex: Female

DRUGS (1)
  1. YAZ PLUS [Suspect]
     Active Substance: DROSPIRENONE\ETHINYL ESTRADIOL
     Indication: ENDOMETRIOSIS
     Route: 048

REACTIONS (6)
  - Drug dose omission [None]
  - Abnormal withdrawal bleeding [None]
  - Vomiting [None]
  - Glaucoma [None]
  - Product use issue [None]
  - Metrorrhagia [None]
